FAERS Safety Report 23701773 (Version 1)
Quarter: 2024Q2

REPORT INFORMATION
  Report Type: Spontaneous
  Country: CN (occurrence: CN)
  Receive Date: 20240403
  Receipt Date: 20240403
  Transmission Date: 20240715
  Serious: Yes (Hospitalization, Other)
  Sender: FDA-Public Use
  Company Number: CN-PFIZER INC-PV202400042739

PATIENT
  Age: 65 Year
  Sex: Female
  Weight: 60 kg

DRUGS (2)
  1. EXEMESTANE [Suspect]
     Active Substance: EXEMESTANE
     Indication: Neoplasm
     Dosage: 25 MG, 1X/DAY
     Route: 048
     Dates: start: 20240124, end: 20240329
  2. PALBOCICLIB [Suspect]
     Active Substance: PALBOCICLIB
     Indication: Neoplasm
     Dosage: 125MG QD PO ORALLY, (3/1 ADMINISTRATION SCHEME)
     Route: 048
     Dates: start: 20240124, end: 20240329

REACTIONS (2)
  - Myelosuppression [Unknown]
  - Dizziness [Unknown]

NARRATIVE: CASE EVENT DATE: 20240326
